FAERS Safety Report 6202406-7 (Version None)
Quarter: 2009Q2

REPORT INFORMATION
  Report Type: 
  Country: None (occurrence: None)
  Receive Date: 20090526
  Receipt Date: 20090514
  Transmission Date: 20091009
  Serious: Yes (Other)
  Sender: FDA-Public Use
  Company Number: US-ELI_LILLY_AND_COMPANY-US200905003083

PATIENT
  Age: 51 Year
  Sex: Female

DRUGS (1)
  1. ZYPREXA [Suspect]
     Dosage: 10 MG, UNK

REACTIONS (7)
  - ANAEMIA [None]
  - ARRHYTHMIA [None]
  - BLOOD CHOLESTEROL INCREASED [None]
  - BUTTERFLY RASH [None]
  - DRY EYE [None]
  - GAIT DISTURBANCE [None]
  - SYSTEMIC LUPUS ERYTHEMATOSUS [None]
